FAERS Safety Report 22296850 (Version 2)
Quarter: 2023Q2

REPORT INFORMATION
  Report Type: Report from Study
  Country: US (occurrence: US)
  Receive Date: 20230509
  Receipt Date: 20230525
  Transmission Date: 20230721
  Serious: No
  Sender: FDA-Public Use
  Company Number: US-ABBVIE-4731435

PATIENT
  Age: 67 Year
  Sex: Female
  Weight: 71.667 kg

DRUGS (5)
  1. HUMIRA [Suspect]
     Active Substance: ADALIMUMAB
     Indication: Psoriatic arthropathy
     Dosage: FORM STRENGTH: 40 MG, THE ONSET DATE OF EVENT PSORIATIC ARTHRITIS FLARES AND FELT LIKE HUMIRA NOT...
     Route: 058
     Dates: start: 20220826
  2. HUMIRA [Suspect]
     Active Substance: ADALIMUMAB
     Dosage: FORM STRENGTH: 40 MG?LAST ADMIN DATE- AUG 2022
     Route: 058
     Dates: start: 20220808
  3. ESTRADIOL [Concomitant]
     Active Substance: ESTRADIOL
     Indication: Hot flush
  4. PREDNISONE [Concomitant]
     Active Substance: PREDNISONE
     Indication: Product used for unknown indication
  5. PREDNISONE [Concomitant]
     Active Substance: PREDNISONE
     Indication: Product used for unknown indication

REACTIONS (6)
  - Tarsal tunnel syndrome [Unknown]
  - Psoriatic arthropathy [Recovered/Resolved]
  - Psoriatic arthropathy [Recovered/Resolved]
  - Therapeutic response shortened [Recovering/Resolving]
  - Psoriatic arthropathy [Not Recovered/Not Resolved]
  - Therapeutic product effect decreased [Not Recovered/Not Resolved]

NARRATIVE: CASE EVENT DATE: 20230401
